FAERS Safety Report 4605718-3 (Version None)
Quarter: 2005Q2

REPORT INFORMATION
  Report Type: 
  Country: None (occurrence: None)
  Receive Date: 20050214
  Receipt Date: 20041228
  Transmission Date: 20051028
  Serious: No
  Sender: FDA-Public Use
  Company Number: USA041287113

PATIENT
  Sex: Male

DRUGS (5)
  1. CIALIS [Suspect]
     Dosage: 10 MG
     Dates: start: 20040601
  2. VERAPAMIL [Concomitant]
  3. LIPITOR [Concomitant]
  4. NAPROXEN SODIUM [Concomitant]
  5. ATENOLOL [Concomitant]

REACTIONS (1)
  - DRUG INEFFECTIVE [None]
